FAERS Safety Report 22629113 (Version 1)
Quarter: 2023Q2

REPORT INFORMATION
  Report Type: Spontaneous
  Country: OM (occurrence: OM)
  Receive Date: 20230622
  Receipt Date: 20230622
  Transmission Date: 20230722
  Serious: Yes (Hospitalization, Other)
  Sender: FDA-Public Use
  Company Number: OM-ORCHIDPHARMA-2023ORC00001

PATIENT
  Age: 6 Month
  Sex: Female
  Weight: 9.5 kg

DRUGS (5)
  1. CEFDINIR [Suspect]
     Active Substance: CEFDINIR
     Indication: Cough
     Dosage: 15 MG/KG/DOSE EVERY 12 HOURS
  2. CEFDINIR [Suspect]
     Active Substance: CEFDINIR
     Indication: Pyrexia
  3. IRON [Suspect]
     Active Substance: IRON
     Indication: Supplementation therapy
  4. LEVOCETIRIZINE [Concomitant]
     Active Substance: LEVOCETIRIZINE
     Indication: Cough
     Dosage: 2.5 ML TWICE PER DAY
  5. LEVOCETIRIZINE [Concomitant]
     Active Substance: LEVOCETIRIZINE

REACTIONS (2)
  - Faeces discoloured [Recovered/Resolved]
  - Drug interaction [Unknown]
